FAERS Safety Report 22057469 (Version 2)
Quarter: 2025Q2

REPORT INFORMATION
  Report Type: Spontaneous
  Country: AU (occurrence: AU)
  Receive Date: 20230303
  Receipt Date: 20250620
  Transmission Date: 20250717
  Serious: Yes (Other)
  Sender: ORGANON
  Company Number: AU-ORGANON-O2302AUS002232

PATIENT
  Age: 59 Year
  Sex: Female

DRUGS (2)
  1. BETAMETHASONE DIPROPIONATE [Suspect]
     Active Substance: BETAMETHASONE DIPROPIONATE
  2. SPIKEVAX [Suspect]
     Active Substance: CX-046684

REACTIONS (4)
  - Bradycardia [Unknown]
  - Supraventricular extrasystoles [Unknown]
  - Tachycardia [Unknown]
  - Ventricular extrasystoles [Unknown]
